FAERS Safety Report 8286395-X (Version None)
Quarter: 2012Q2

REPORT INFORMATION
  Report Type: 
  Country: None (occurrence: None)
  Receive Date: 20120411
  Receipt Date: 20120106
  Transmission Date: 20120825
  Serious: Yes (Other)
  Sender: FDA-Public Use
  Company Number: 2012SP017382

PATIENT
  Sex: Female
  Weight: 50 kg

DRUGS (4)
  1. RIBAVIRIN [Suspect]
     Indication: HEPATITIS C
  2. BOCEPREVIR (SCH-503034) [Suspect]
     Indication: HEPATITIS C
  3. PEGINTERFERON ALFA-2A [Suspect]
     Indication: HEPATITIS C
     Dosage: 180 MCG;QW;SC
     Route: 058
     Dates: start: 20111104
  4. TELAPREVIR (INVESTIGATIONAL DRUG) [Suspect]
     Indication: HEPATITIS C

REACTIONS (1)
  - THERAPY CESSATION [None]
